FAERS Safety Report 5348516-8 (Version None)
Quarter: 2007Q2

REPORT INFORMATION
  Report Type: 
  Country: None (occurrence: None)
  Receive Date: 20070606
  Receipt Date: 20070525
  Transmission Date: 20071010
  Serious: Yes (Other)
  Sender: FDA-Public Use
  Company Number: US-PFIZER INC-2007043647

PATIENT
  Sex: Male

DRUGS (2)
  1. LIPITOR [Suspect]
  2. CRESTOR [Suspect]

REACTIONS (5)
  - BACK PAIN [None]
  - HEADACHE [None]
  - KIDNEY ENLARGEMENT [None]
  - PAIN IN EXTREMITY [None]
  - PYREXIA [None]
